FAERS Safety Report 10177494 (Version 2)
Quarter: 2014Q2

REPORT INFORMATION
  Report Type: Report from Study
  Country: GB (occurrence: GB)
  Receive Date: 20140516
  Receipt Date: 20140521
  Transmission Date: 20141212
  Serious: Yes (Hospitalization)
  Sender: FDA-Public Use
  Company Number: GB-MERCK-1405GBR006263

PATIENT
  Age: 70 Year
  Sex: Male
  Weight: 87 kg

DRUGS (12)
  1. VORINOSTAT [Suspect]
     Indication: ACUTE MYELOID LEUKAEMIA
     Dosage: 300 MG BID, (CURRENT CYCLE 1)
     Route: 048
     Dates: start: 20140430, end: 20140503
  2. VORINOSTAT [Suspect]
     Indication: MYELODYSPLASTIC SYNDROME
  3. 5-AZACYTIDINE [Suspect]
     Indication: ACUTE MYELOID LEUKAEMIA
     Dosage: 155 MG, OD (CURRENT CYCLE 1)
     Route: 058
     Dates: start: 20140428, end: 20140502
  4. 5-AZACYTIDINE [Suspect]
     Indication: MYELODYSPLASTIC SYNDROME
  5. RAMIPRIL [Concomitant]
     Indication: HYPERTENSION
     Dosage: UNK
     Dates: end: 20140502
  6. METFORMIN [Concomitant]
     Indication: DIABETES MELLITUS
     Dosage: UNK
     Dates: end: 20140502
  7. GLICLAZIDE [Concomitant]
     Indication: DIABETES MELLITUS
     Dosage: UNK
     Dates: end: 20140502
  8. BENDROFLUMETHIAZIDE [Concomitant]
     Indication: HYPERTENSION
     Dosage: UNK
     Dates: end: 20140502
  9. ALLOPURINOL [Concomitant]
     Indication: HYPERURICAEMIA
     Dosage: UNK
     Dates: end: 20140502
  10. CIPROFLOXACIN [Concomitant]
     Indication: ANTIBIOTIC PROPHYLAXIS
     Dosage: UNK
     Dates: end: 20140502
  11. FLUCONAZOLE [Concomitant]
     Indication: ANTIFUNGAL PROPHYLAXIS
     Dosage: UNK
     Dates: end: 20140502
  12. SENNA [Concomitant]
     Indication: CONSTIPATION
     Dosage: UNK
     Dates: end: 20140502

REACTIONS (2)
  - Hypoglycaemia [Recovered/Resolved]
  - Blood creatinine increased [Recovered/Resolved]
